FAERS Safety Report 6107920-0 (Version None)
Quarter: 2009Q1

REPORT INFORMATION
  Report Type: 
  Country: None (occurrence: None)
  Receive Date: 20090305
  Receipt Date: 20090305
  Transmission Date: 20090719
  Serious: Yes (Hospitalization)
  Sender: FDA-Public Use
  Company Number: None

PATIENT
  Sex: Female
  Weight: 77.5651 kg

DRUGS (7)
  1. COPAXONE [Suspect]
     Indication: MULTIPLE SCLEROSIS
     Dosage: 20MG EVERY DAY SQ
     Route: 058
     Dates: start: 20070101
  2. SINGULAIR [Concomitant]
  3. ZYRTEC [Concomitant]
  4. CARAFATE [Concomitant]
  5. PROTONIX [Concomitant]
  6. LEXAPRO [Concomitant]
  7. COLACE [Concomitant]

REACTIONS (1)
  - HEPATIC CIRRHOSIS [None]
